FAERS Safety Report 18285631 (Version 2)
Quarter: 2020Q3

REPORT INFORMATION
  Report Type: Spontaneous
  Country: US (occurrence: US)
  Receive Date: 20200918
  Receipt Date: 20200924
  Transmission Date: 20201103
  Serious: No
  Sender: FDA-Public Use
  Company Number: NVSC2020US256074

PATIENT

DRUGS (1)
  1. VOLTAREN EMULGEL [Suspect]
     Active Substance: DICLOFENAC DIETHYLAMINE
     Indication: ARTHRITIS
     Dosage: UNK
     Route: 065
     Dates: start: 202008

REACTIONS (6)
  - Skin exfoliation [Unknown]
  - Skin injury [Unknown]
  - Skin irritation [Unknown]
  - Condition aggravated [Unknown]
  - Incorrect product administration duration [Unknown]
  - Dry skin [Unknown]
